FAERS Safety Report 6142689-5 (Version None)
Quarter: 2009Q2

REPORT INFORMATION
  Report Type: 
  Country: None (occurrence: None)
  Receive Date: 20090403
  Receipt Date: 20080324
  Transmission Date: 20091009
  Serious: Yes (Hospitalization, Other)
  Sender: FDA-Public Use
  Company Number: US-ASTRAZENECA-2007UW27333

PATIENT
  Age: 502 Month
  Sex: Male
  Weight: 107 kg

DRUGS (23)
  1. SEROQUEL [Suspect]
     Indication: BIPOLAR DISORDER
     Dosage: 100 MG, 200 MG,  300 MG
     Route: 048
     Dates: start: 20020701, end: 20071001
  2. SEROQUEL [Suspect]
     Indication: ANXIETY
     Dosage: 100 MG, 200 MG,  300 MG
     Route: 048
     Dates: start: 20020701, end: 20071001
  3. SEROQUEL [Suspect]
     Indication: INSOMNIA
     Dosage: 100 MG, 200 MG,  300 MG
     Route: 048
     Dates: start: 20020701, end: 20071001
  4. SEROQUEL [Suspect]
     Dosage: 25MG-600MG
     Route: 048
     Dates: start: 20020701
  5. SEROQUEL [Suspect]
     Dosage: 25MG-600MG
     Route: 048
     Dates: start: 20020701
  6. SEROQUEL [Suspect]
     Dosage: 25MG-600MG
     Route: 048
     Dates: start: 20020701
  7. TRAZODONE [Concomitant]
     Dates: start: 19971101
  8. DEPAKOTE [Concomitant]
     Dates: start: 20030901
  9. PAROXETINE HCL [Concomitant]
     Dates: start: 20000901
  10. ASPIRIN [Concomitant]
  11. LISINOPRIL [Concomitant]
  12. METFORMIN HCL [Concomitant]
  13. VARDENAFIL [Concomitant]
  14. INSULIN, HUMAN [Concomitant]
  15. HYDROXYZINE PAMOATE [Concomitant]
  16. SILDENAFIL CITRATE [Concomitant]
  17. DIPHENHYDRAMINE HCL [Concomitant]
  18. GLYBURIDE [Concomitant]
  19. ACARBOSE [Concomitant]
  20. ALBUTEROL [Concomitant]
  21. LEVALBUTEROL HCL [Concomitant]
  22. LORAZEPAM [Concomitant]
  23. NICOTINE [Concomitant]

REACTIONS (19)
  - ADJUSTMENT DISORDER WITH ANXIETY [None]
  - AFFECTIVE DISORDER [None]
  - ARTHRALGIA [None]
  - BACK PAIN [None]
  - BIPOLAR DISORDER [None]
  - CHEST PAIN [None]
  - CHRONIC OBSTRUCTIVE PULMONARY DISEASE [None]
  - COUGH [None]
  - DEPRESSED MOOD [None]
  - DIABETES MELLITUS [None]
  - DIABETIC RETINOPATHY [None]
  - DIARRHOEA [None]
  - DYSLIPIDAEMIA [None]
  - HEADACHE [None]
  - HOMICIDAL IDEATION [None]
  - HYPERMETROPIA [None]
  - HYPOACUSIS [None]
  - MUSCLE SPASMS [None]
  - SUICIDAL IDEATION [None]
